FAERS Safety Report 13074953 (Version 2)
Quarter: 2017Q1

REPORT INFORMATION
  Report Type: Spontaneous
  Country: US (occurrence: US)
  Receive Date: 20161230
  Receipt Date: 20170106
  Transmission Date: 20170428
  Serious: No
  Sender: FDA-Public Use
  Company Number: US-PFIZER INC-2016602931

PATIENT
  Age: 86 Year
  Sex: Male
  Weight: 68.4 kg

DRUGS (4)
  1. WARFARIN [Concomitant]
     Active Substance: WARFARIN
     Indication: ANTICOAGULANT THERAPY
     Dosage: 7.5 MG, 1X/DAY
  2. CELEBREX [Concomitant]
     Active Substance: CELECOXIB
     Indication: SCIATICA
     Dosage: 100 MG, 2X/DAY
     Dates: start: 20161205, end: 20161214
  3. DILTIAZEM. [Concomitant]
     Active Substance: DILTIAZEM
     Indication: BLOOD PRESSURE ABNORMAL
     Dosage: 180 MG, 1X/DAY
  4. GABAPENTIN. [Suspect]
     Active Substance: GABAPENTIN
     Indication: SCIATICA
     Dosage: 600 MG, DAILY
     Dates: start: 20161130, end: 20161219

REACTIONS (3)
  - Product use issue [Unknown]
  - Lip dry [Unknown]
  - Pruritus [Not Recovered/Not Resolved]

NARRATIVE: CASE EVENT DATE: 20161130
